FAERS Safety Report 5524940-5 (Version None)
Quarter: 2007Q4

REPORT INFORMATION
  Report Type: 
  Country: None (occurrence: None)
  Receive Date: 20071119
  Receipt Date: 20071102
  Transmission Date: 20080405
  Serious: Yes (Death)
  Sender: FDA-Public Use
  Company Number: B0495334A

PATIENT
  Sex: 0

DRUGS (1)
  1. COREG [Suspect]
     Indication: CARDIAC FAILURE CHRONIC
     Dosage: TWICE PER DAY / ORAL
     Route: 048

REACTIONS (1)
  - CARDIAC DEATH [None]
